FAERS Safety Report 15029515 (Version 4)
Quarter: 2018Q3

REPORT INFORMATION
  Report Type: Spontaneous
  Country: BR (occurrence: BR)
  Receive Date: 20180619
  Receipt Date: 20180920
  Transmission Date: 20181010
  Serious: Yes (Other)
  Sender: FDA-Public Use
  Company Number: BR-SAKK-2018SA152073AA

PATIENT
  Age: 46 Year
  Sex: Male
  Weight: 74.3 kg

DRUGS (3)
  1. HYDROCORTISONE. [Concomitant]
     Active Substance: HYDROCORTISONE
     Indication: PREMEDICATION
     Dosage: 300 MG, QD
     Route: 042
     Dates: start: 20180529, end: 20180529
  2. THYMOGLOBULINE [Suspect]
     Active Substance: LAPINE T-LYMPHOCYTE IMMUNE GLOBULIN
     Indication: IMMUNOSUPPRESSION
     Dosage: 75 MG, QD
     Route: 042
     Dates: start: 20180529, end: 20180529
  3. METAMIZOLE SODIUM [Concomitant]
     Active Substance: METAMIZOLE SODIUM
     Indication: PREMEDICATION
     Dosage: 1000 MG, QD
     Dates: start: 20180528, end: 20180531

REACTIONS (11)
  - Muscle twitching [Recovered/Resolved]
  - Lymphocyte count decreased [Recovered/Resolved]
  - Paraesthesia [Recovered/Resolved]
  - Feeling cold [Recovered/Resolved]
  - Red cell distribution width increased [Recovered/Resolved]
  - Pyrexia [Recovered/Resolved]
  - Eosinophil count decreased [Recovered/Resolved]
  - Anisocytosis [Recovered/Resolved]
  - Hypertension [Recovered/Resolved]
  - Haemoglobin decreased [Recovered/Resolved]
  - Platelet count decreased [Recovered/Resolved]

NARRATIVE: CASE EVENT DATE: 20180529
